FAERS Safety Report 7001403-1 (Version None)
Quarter: 2010Q3

REPORT INFORMATION
  Report Type: 
  Country: None (occurrence: None)
  Receive Date: 20100920
  Receipt Date: 20100104
  Transmission Date: 20110219
  Serious: Yes (Other)
  Sender: FDA-Public Use
  Company Number: US-ASTRAZENECA-2009SE13409

PATIENT
  Age: 45 Year
  Sex: Female
  Weight: 109.8 kg

DRUGS (11)
  1. SEROQUEL [Suspect]
     Indication: DEPRESSION
     Route: 048
     Dates: start: 20050501
  2. TRAZODONE HCL [Concomitant]
     Indication: DEPRESSION
     Dates: start: 20071101, end: 20080201
  3. TRAZODONE HCL [Concomitant]
     Indication: SLEEP DISORDER
     Dates: start: 20071101, end: 20080201
  4. KLONOPIN [Concomitant]
  5. PAXIL [Concomitant]
  6. CYMBALTA [Concomitant]
     Indication: DEPRESSION
     Dates: start: 20071101, end: 20080201
  7. LEXAPRO [Concomitant]
  8. WELLBUTRIN [Concomitant]
  9. SERTRALINE HYDROCHLORIDE [Concomitant]
     Indication: DEPRESSION
     Dates: start: 20061201, end: 20070701
  10. BUPROPION HCL [Concomitant]
     Indication: DEPRESSION
     Dates: start: 20061201, end: 20070701
  11. AMITRIPTYLINE HCL [Concomitant]
     Indication: DEPRESSION
     Dates: start: 20070301, end: 20080201

REACTIONS (9)
  - AGORAPHOBIA [None]
  - BLOOD CHOLESTEROL INCREASED [None]
  - CARPAL TUNNEL SYNDROME [None]
  - CEREBROVASCULAR ACCIDENT [None]
  - MENORRHAGIA [None]
  - MERALGIA PARAESTHETICA [None]
  - SLEEP APNOEA SYNDROME [None]
  - TYPE 2 DIABETES MELLITUS [None]
  - UTERINE LEIOMYOMA [None]
